FAERS Safety Report 9783661 (Version 1)
Quarter: 2013Q4

REPORT INFORMATION
  Report Type: Spontaneous
  Country: AU (occurrence: None)
  Receive Date: 20131223
  Receipt Date: 20131223
  Transmission Date: 20140711
  Serious: Yes (Other)
  Sender: FDA-Public Use
  Company Number: 2013000349

PATIENT
  Sex: Male

DRUGS (3)
  1. ACEON (PERINDOPRIL ERBUMINE) TABLET [Suspect]
     Indication: PRODUCT USED FOR UNKNOWN INDICATION
  2. FELODIPINE [Suspect]
  3. SIMVASTATIN (SIMVASTATIN) [Suspect]
     Indication: PRODUCT USED FOR UNKNOWN INDICATION

REACTIONS (1)
  - Cataract [None]
